FAERS Safety Report 9381054 (Version 1)
Quarter: 2013Q3

REPORT INFORMATION
  Report Type: Spontaneous
  Country: US (occurrence: US)
  Receive Date: 20130703
  Receipt Date: 20130703
  Transmission Date: 20140515
  Serious: No
  Sender: FDA-Public Use
  Company Number: US-BIOGENIDEC-2012BI064773

PATIENT
  Age: 34 Year
  Sex: Male

DRUGS (4)
  1. AVONEX [Suspect]
     Indication: MULTIPLE SCLEROSIS
     Route: 030
     Dates: start: 20121207, end: 201301
  2. AVONEX [Suspect]
     Indication: MULTIPLE SCLEROSIS
     Route: 030
     Dates: start: 201301, end: 201306
  3. OXYCODONE [Concomitant]
     Indication: PAIN
  4. OXYCODONE [Concomitant]
     Indication: PREMEDICATION

REACTIONS (11)
  - Hypoaesthesia [Recovered/Resolved]
  - Abasia [Recovered/Resolved]
  - Osteoarthritis [Not Recovered/Not Resolved]
  - Dehydration [Unknown]
  - Nerve block [Unknown]
  - Back pain [Unknown]
  - Influenza like illness [Recovered/Resolved]
  - Muscle spasms [Unknown]
  - Malaise [Unknown]
  - Musculoskeletal stiffness [Recovered/Resolved]
  - Arthralgia [Unknown]
